FAERS Safety Report 21795067 (Version 7)
Quarter: 2025Q1

REPORT INFORMATION
  Report Type: Report from Study
  Country: BR (occurrence: BR)
  Receive Date: 20221229
  Receipt Date: 20250317
  Transmission Date: 20250409
  Serious: Yes (Other)
  Sender: MYLAN
  Company Number: BR-MYLANLABS-2022M1147802

PATIENT
  Age: 60 Year
  Sex: Female
  Weight: 78 kg

DRUGS (14)
  1. PREGABALIN [Suspect]
     Active Substance: PREGABALIN
     Indication: Fibromyalgia
     Dosage: 150 MILLIGRAM, QD, 2 PILLS A DAY
     Dates: start: 2022
  2. PREGABALIN [Suspect]
     Active Substance: PREGABALIN
     Indication: Insomnia
  3. MESALAMINE [Suspect]
     Active Substance: MESALAMINE
     Indication: Crohn^s disease
     Dosage: 2400 MILLIGRAM, TID  3 PILLS A DAY
     Dates: start: 2022
  4. MESALAMINE [Suspect]
     Active Substance: MESALAMINE
     Dosage: 2400 MILLIGRAM, QD
     Dates: start: 2022
  5. INFLIXIMAB [Suspect]
     Active Substance: INFLIXIMAB
     Indication: Crohn^s disease
     Dosage: UNK, MONTHLY
  6. INFLIXIMAB [Suspect]
     Active Substance: INFLIXIMAB
     Dosage: UNK, BIMONTHLY, 4 AMPOULES EVERY 2 MONTHS
     Dates: start: 2022
  7. INFLIXIMAB [Suspect]
     Active Substance: INFLIXIMAB
     Dosage: UNK, BIMONTHLY, 4 AMPOULES EVERY 2 MONTHS
     Dates: start: 202210, end: 20221219
  8. INFLIXIMAB [Suspect]
     Active Substance: INFLIXIMAB
     Dosage: UNK, BIMONTHLY, 4 AMPOULES EVERY 2 MONTHS
     Dates: start: 20221219
  9. INFLIXIMAB [Suspect]
     Active Substance: INFLIXIMAB
     Dosage: UNK, BIMONTHLY
     Dates: start: 2022, end: 20221219
  10. Zetron [Concomitant]
     Indication: Depression
     Dosage: 150 MILLIGRAM, QD
     Dates: start: 2012
  11. SIMVASTATIN [Concomitant]
     Active Substance: SIMVASTATIN
     Indication: Blood cholesterol increased
     Dosage: 20 MILLIGRAM, QD
     Dates: start: 2012
  12. Revoc [Concomitant]
     Indication: Depression
     Dosage: 100 MILLIGRAM, QD
     Dates: start: 2012
  13. FLUNITRAZEPAM [Concomitant]
     Active Substance: FLUNITRAZEPAM
     Indication: Insomnia
     Dosage: 1 MILLIGRAM, QD
     Dates: start: 2017
  14. VITAMIN D [Concomitant]
     Active Substance: VITAMIN D NOS
     Indication: Osteopenia
     Dosage: 2000 INTERNATIONAL UNIT, QD
     Dates: start: 2002

REACTIONS (15)
  - Crohn^s disease [Unknown]
  - COVID-19 [Unknown]
  - Pneumonia [Unknown]
  - Colitis [Unknown]
  - Oesophagitis [Unknown]
  - Gastrointestinal disorder [Unknown]
  - Fibromyalgia [Unknown]
  - Tendonitis [Unknown]
  - Discouragement [Unknown]
  - Sinusitis [Unknown]
  - Arthralgia [Unknown]
  - Fatigue [Unknown]
  - Diarrhoea [Unknown]
  - Off label use [Unknown]
  - Treatment delayed [Unknown]
